FAERS Safety Report 9325929 (Version 1)
Quarter: 2013Q2

REPORT INFORMATION
  Report Type: Spontaneous
  Country: GB (occurrence: GB)
  Receive Date: 20130604
  Receipt Date: 20130604
  Transmission Date: 20140414
  Serious: Yes (Hospitalization, Other)
  Sender: FDA-Public Use
  Company Number: GB-PFIZER INC-2013166665

PATIENT
  Sex: Male

DRUGS (1)
  1. VIAGRA [Suspect]
     Dosage: 50 MG, 1 TABLET EVERY 4 NIGHTS

REACTIONS (2)
  - Arrhythmia [Unknown]
  - Congestive cardiomyopathy [Unknown]
